FAERS Safety Report 9009713 (Version 3)
Quarter: 2013Q3

REPORT INFORMATION
  Report Type: Spontaneous
  Country: US (occurrence: US)
  Receive Date: 20130110
  Receipt Date: 20130716
  Transmission Date: 20140515
  Serious: Yes (Hospitalization, Other)
  Sender: FDA-Public Use
  Company Number: US-009507513-1301USA002411

PATIENT
  Sex: Female
  Weight: 71.2 kg

DRUGS (4)
  1. FOSAMAX [Suspect]
     Indication: OSTEOPENIA
     Dosage: 70 MG, QW
     Route: 048
     Dates: start: 20021010, end: 200801
  2. ALENDRONATE SODIUM [Suspect]
     Indication: OSTEOPENIA
     Dosage: 70 MG, UNK
     Dates: start: 20080425, end: 201105
  3. CALCIUM (UNSPECIFIED) [Concomitant]
     Indication: OSTEOPENIA
     Dosage: 1200-1500 MG QD
  4. VITAMIN D (UNSPECIFIED) [Concomitant]
     Indication: OSTEOPENIA
     Dosage: 400-800 IU QD

REACTIONS (17)
  - Acetabulum fracture [Unknown]
  - Intramedullary rod insertion [Unknown]
  - Joint dislocation [Unknown]
  - Joint dislocation reduction [Unknown]
  - Osteoarthritis [Unknown]
  - Hip arthroplasty [Unknown]
  - Low turnover osteopathy [Unknown]
  - Vitamin D deficiency [Unknown]
  - Spinal osteoarthritis [Unknown]
  - Osteoarthritis [Unknown]
  - Hypothyroidism [Unknown]
  - Intervertebral disc degeneration [Unknown]
  - Appendicitis perforated [Unknown]
  - Depression [Unknown]
  - Osteoporosis [Unknown]
  - Insomnia [Unknown]
  - Constipation [Unknown]
